FAERS Safety Report 7511720-4 (Version None)
Quarter: 2011Q2

REPORT INFORMATION
  Report Type: 
  Country: None (occurrence: None)
  Receive Date: 20110531
  Receipt Date: 20110517
  Transmission Date: 20111010
  Serious: Yes (Hospitalization)
  Sender: FDA-Public Use
  Company Number: CA-JNJFOC-20100902219

PATIENT
  Sex: Male
  Weight: 92 kg

DRUGS (9)
  1. SEROQUEL [Concomitant]
     Route: 048
  2. FLOMAX [Concomitant]
     Route: 048
     Dates: start: 20100904
  3. DESYREL [Concomitant]
     Route: 048
  4. REMICADE [Suspect]
     Indication: CROHN'S DISEASE
     Route: 042
  5. REMICADE [Suspect]
     Route: 042
     Dates: start: 20100127
  6. FLURAZEPAM [Concomitant]
     Route: 048
  7. EFFEXOR [Concomitant]
     Route: 048
  8. SODIUM CARBONATE [Concomitant]
     Route: 048
     Dates: start: 20100904
  9. PURINETHOL [Concomitant]
     Route: 048

REACTIONS (1)
  - NEPHROLITHIASIS [None]
